FAERS Safety Report 17383859 (Version 1)
Quarter: 2020Q1

REPORT INFORMATION
  Report Type: Spontaneous
  Country: US (occurrence: US)
  Receive Date: 20200206
  Receipt Date: 20200206
  Transmission Date: 20200409
  Serious: No
  Sender: FDA-Public Use
  Company Number: US-ABBVIE-19K-163-3001489-00

PATIENT
  Sex: Female

DRUGS (1)
  1. HUMIRA [Suspect]
     Active Substance: ADALIMUMAB
     Indication: PSORIASIS
     Route: 058

REACTIONS (6)
  - Drug ineffective [Unknown]
  - Psoriasis [Unknown]
  - Furuncle [Unknown]
  - Staphylococcal infection [Unknown]
  - Necrobiosis lipoidica diabeticorum [Unknown]
  - Sinus disorder [Unknown]
